FAERS Safety Report 6911100-6 (Version None)
Quarter: 2010Q3

REPORT INFORMATION
  Report Type: 
  Country: None (occurrence: None)
  Receive Date: 20100806
  Receipt Date: 20100722
  Transmission Date: 20110219
  Serious: Yes (Death, Hospitalization, Other)
  Sender: FDA-Public Use
  Company Number: US-PFIZER INC-2008003971

PATIENT
  Sex: Female

DRUGS (6)
  1. CHANTIX [Suspect]
     Indication: SMOKING CESSATION THERAPY
     Dosage: 0.5MG/1MG, UNK
     Route: 048
     Dates: start: 20070905, end: 20070911
  2. DIAZEPAM [Concomitant]
     Indication: DEPRESSION
     Dosage: UNK
     Dates: end: 20070911
  3. DIAZEPAM [Concomitant]
     Indication: ANXIETY
  4. DIAZEPAM [Concomitant]
     Indication: MUSCLE SPASMS
  5. ZANAFLEX [Concomitant]
     Indication: MUSCLE SPASMS
     Dosage: UNK
     Dates: end: 20070911
  6. RESTORIL [Concomitant]
     Indication: SLEEP DISORDER
     Dosage: UNK
     Dates: start: 20010101, end: 20070911

REACTIONS (6)
  - ABNORMAL BEHAVIOUR [None]
  - ANXIETY [None]
  - COMPLETED SUICIDE [None]
  - DEPRESSION [None]
  - PHYSICAL ASSAULT [None]
  - SCREAMING [None]
